FAERS Safety Report 6076019-4 (Version None)
Quarter: 2009Q1

REPORT INFORMATION
  Report Type: 
  Country: None (occurrence: None)
  Receive Date: 20090212
  Receipt Date: 20090108
  Transmission Date: 20090719
  Serious: Yes (Other)
  Sender: FDA-Public Use
  Company Number: US-PURDUE-USA_2009_0036470

PATIENT
  Age: 30 Year
  Sex: Female

DRUGS (1)
  1. OXYCONTIN [Suspect]
     Indication: BACK PAIN
     Dosage: UNK, SEE TEXT
     Route: 048
     Dates: start: 19980101, end: 20070101

REACTIONS (4)
  - DRUG DEPENDENCE [None]
  - EUPHORIC MOOD [None]
  - SELF ESTEEM DECREASED [None]
  - SUICIDE ATTEMPT [None]
